FAERS Safety Report 24439340 (Version 2)
Quarter: 2024Q4

REPORT INFORMATION
  Report Type: Spontaneous
  Country: NL (occurrence: NL)
  Receive Date: 20241015
  Receipt Date: 20241114
  Transmission Date: 20250114
  Serious: Yes (Other)
  Sender: GLAXOSMITHKLINE
  Company Number: None

PATIENT

DRUGS (2)
  1. ALBUTEROL [Suspect]
     Active Substance: ALBUTEROL
     Indication: Asthma
     Dosage: UNK (INHALATION - AEROSOL, 1-4 TIMES DAILY 1 INHALATION, PRODUCT NUMBER: 268833)
     Route: 055
     Dates: start: 20240419, end: 20240813
  2. ALBUTEROL [Suspect]
     Active Substance: ALBUTEROL
     Indication: Chronic obstructive pulmonary disease

REACTIONS (2)
  - Chest discomfort [Unknown]
  - Product packaging quantity issue [Unknown]
